FAERS Safety Report 5797895-6 (Version None)
Quarter: 2008Q3

REPORT INFORMATION
  Report Type: 
  Country: None (occurrence: None)
  Receive Date: 20080702
  Receipt Date: 20080618
  Transmission Date: 20090109
  Serious: No
  Sender: FDA-Public Use
  Company Number: FR-WYE-G01680508

PATIENT
  Age: 66 Year
  Sex: Male

DRUGS (2)
  1. TORISEL [Suspect]
     Indication: RENAL CANCER METASTATIC
     Dosage: 1 DOSE WEEKLY
     Route: 042
     Dates: start: 20080301
  2. DURAGESIC-100 [Concomitant]
     Indication: BONE PAIN
     Dosage: 100 MG/H; FREQUENCY UNSPECIFIED
     Route: 062

REACTIONS (2)
  - ANAEMIA [None]
  - NEUROPATHY PERIPHERAL [None]
